FAERS Safety Report 21684283 (Version 7)
Quarter: 2024Q2

REPORT INFORMATION
  Report Type: Spontaneous
  Country: IT (occurrence: IT)
  Receive Date: 20221205
  Receipt Date: 20240624
  Transmission Date: 20240716
  Serious: Yes (Other)
  Sender: FDA-Public Use
  Company Number: IT-ALNYLAM PHARMACEUTICALS, INC.-ALN-2022-004338

PATIENT

DRUGS (5)
  1. OXLUMO [Suspect]
     Active Substance: LUMASIRAN
     Indication: Primary hyperoxaluria
     Dosage: 1 MILLIGRAM/KILOGRAM, MONTHLY
     Route: 058
     Dates: start: 20200127, end: 20200127
  2. OXLUMO [Suspect]
     Active Substance: LUMASIRAN
     Dosage: 1 MILLIGRAM/KILOGRAM, MONTHLY
     Route: 058
     Dates: start: 20230720, end: 20230720
  3. PYRIDOXINE [Concomitant]
     Active Substance: PYRIDOXINE
     Indication: Product used for unknown indication
     Dosage: UNK
     Route: 065
  4. POTASSIUM CITRATE [Concomitant]
     Active Substance: POTASSIUM CITRATE
     Indication: Product used for unknown indication
     Dosage: UNK
     Route: 065
  5. SODIUM BICARBONATE [Concomitant]
     Active Substance: SODIUM BICARBONATE
     Indication: Product used for unknown indication
     Dosage: UNK
     Route: 065

REACTIONS (4)
  - Pyelonephritis [Recovered/Resolved]
  - Nephrolithiasis [Recovered/Resolved]
  - Nephrocalcinosis [Recovered/Resolved]
  - Injection site erythema [Unknown]

NARRATIVE: CASE EVENT DATE: 20221201
